FAERS Safety Report 15772046 (Version 1)
Quarter: 2018Q4

REPORT INFORMATION
  Report Type: Report from Study
  Country: None (occurrence: US)
  Receive Date: 20181228
  Receipt Date: 20181228
  Transmission Date: 20190205
  Serious: Yes (Other)
  Sender: FDA-Public Use
  Company Number: US-ABBVIE-18S-163-2601819-00

PATIENT
  Sex: Female

DRUGS (1)
  1. CREON [Suspect]
     Active Substance: PANCRELIPASE AMYLASE\PANCRELIPASE LIPASE\PANCRELIPASE PROTEASE
     Indication: PRODUCT USED FOR UNKNOWN INDICATION
     Route: 048

REACTIONS (11)
  - Omentectomy [Unknown]
  - Pancreatectomy [Unknown]
  - Splenectomy [Unknown]
  - Small intestinal resection [Unknown]
  - Venous repair [Unknown]
  - Pancreaticojejunostomy [Unknown]
  - Incisional hernia [Unknown]
  - Suture insertion [Unknown]
  - Pancreatitis chronic [Unknown]
  - Splenic flexure mobilisation [Unknown]
  - Pancreas islet cell transplant [Unknown]
